FAERS Safety Report 23753999 (Version 2)
Quarter: 2024Q2

REPORT INFORMATION
  Report Type: Spontaneous
  Country: FR (occurrence: FR)
  Receive Date: 20240417
  Receipt Date: 20240425
  Transmission Date: 20240716
  Serious: Yes (Hospitalization, Other)
  Sender: FDA-Public Use
  Company Number: FR-ROCHE-3194084

PATIENT
  Age: 50 Year
  Sex: Female

DRUGS (6)
  1. AZATHIOPRINE [Suspect]
     Active Substance: AZATHIOPRINE
     Indication: Product used for unknown indication
     Dosage: UNK
     Route: 065
  2. MYCOPHENOLATE MOFETIL [Suspect]
     Active Substance: MYCOPHENOLATE MOFETIL
     Indication: Immunosuppression
     Dosage: UNK
     Route: 065
  3. PREDNISOLONE [Suspect]
     Active Substance: PREDNISOLONE
     Indication: Immunosuppression
     Dosage: UNK
     Route: 065
  4. RITUXIMAB [Suspect]
     Active Substance: RITUXIMAB
     Indication: Immunosuppression
     Dosage: UNK
     Route: 065
     Dates: start: 201409
  5. TACROLIMUS [Suspect]
     Active Substance: TACROLIMUS
     Indication: Immunosuppression
     Dosage: UNK
     Route: 065
  6. THYMOGLOBULIN [Suspect]
     Active Substance: LAPINE T-LYMPHOCYTE IMMUNE GLOBULIN
     Indication: Immunosuppression
     Dosage: UNK
     Route: 065
     Dates: start: 201409

REACTIONS (10)
  - Splenic abscess [Recovered/Resolved]
  - Hepatic infection bacterial [Recovered/Resolved]
  - Arthritis reactive [Recovered/Resolved]
  - Erythema nodosum [Recovered/Resolved]
  - Bacteraemia [Recovered/Resolved]
  - Ascites [Recovered/Resolved]
  - Campylobacter infection [Recovered/Resolved]
  - Hepatitis [Recovered/Resolved]
  - Enterocolitis [Recovered/Resolved]
  - Viral diarrhoea [Unknown]

NARRATIVE: CASE EVENT DATE: 20140101
